FAERS Safety Report 6757937-8 (Version None)
Quarter: 2010Q2

REPORT INFORMATION
  Report Type: 
  Country: None (occurrence: None)
  Receive Date: 20100607
  Receipt Date: 20100531
  Transmission Date: 20101027
  Serious: No
  Sender: FDA-Public Use
  Company Number: BE-ASTRAZENECA-2010SE22307

PATIENT
  Sex: Male
  Weight: 85 kg

DRUGS (7)
  1. SEROQUEL XR [Suspect]
     Indication: PSYCHOTIC DISORDER
     Route: 048
     Dates: start: 20100406
  2. ANTABUSE [Concomitant]
  3. ETUMINE [Concomitant]
  4. LORMETAZEPAM [Concomitant]
  5. NULYTELY [Concomitant]
  6. STRUMAZOL [Concomitant]
  7. TRAZOLAN [Concomitant]

REACTIONS (1)
  - DRUG SCREEN FALSE POSITIVE [None]
